FAERS Safety Report 11660973 (Version 3)
Quarter: 2016Q1

REPORT INFORMATION
  Report Type: Report from Study
  Country: JP (occurrence: JP)
  Receive Date: 20151026
  Receipt Date: 20160211
  Transmission Date: 20160525
  Serious: Yes (Hospitalization)
  Sender: FDA-Public Use
  Company Number: JP-EISAI MEDICAL RESEARCH-EC-2015-011485

PATIENT
  Age: 76 Year
  Sex: Male

DRUGS (13)
  1. LENVIMA [Suspect]
     Active Substance: LENVATINIB
     Route: 048
     Dates: start: 20150716, end: 20150914
  2. ADALAT [Concomitant]
     Active Substance: NIFEDIPINE
  3. HIRUDOID [Concomitant]
     Active Substance: GLYCOSAMINOGLYCANS
  4. DERMOVATE [Concomitant]
     Active Substance: CLOBETASOL
  5. SATOSALBE [Concomitant]
     Active Substance: ZINC OXIDE
  6. LEVOTHYROXINE SODIUM. [Concomitant]
     Active Substance: LEVOTHYROXINE SODIUM
  7. RINDERON VG [Concomitant]
     Active Substance: BETAMETHASONE VALERATE\GENTAMICIN SULFATE
  8. LENVIMA [Suspect]
     Active Substance: LENVATINIB
     Indication: PAPILLARY THYROID CANCER
     Route: 048
     Dates: start: 20150711, end: 20150715
  9. MICARDIS [Suspect]
     Active Substance: TELMISARTAN
     Route: 048
     Dates: start: 20150722
  10. DESPA [Concomitant]
  11. THYRADIN [Concomitant]
     Active Substance: LEVOTHYROXINE
  12. LENVIMA [Suspect]
     Active Substance: LENVATINIB
     Route: 048
     Dates: start: 20150919, end: 20151002
  13. MICARDIS [Suspect]
     Active Substance: TELMISARTAN
     Indication: PROPHYLAXIS
     Route: 048
     Dates: start: 20150718, end: 20150721

REACTIONS (1)
  - Renal failure [Recovering/Resolving]

NARRATIVE: CASE EVENT DATE: 20150926
